FAERS Safety Report 18079147 (Version 1)
Quarter: 2020Q3

REPORT INFORMATION
  Report Type: Spontaneous
  Country: US (occurrence: US)
  Receive Date: 20200728
  Receipt Date: 20200728
  Transmission Date: 20201103
  Serious: No
  Sender: FDA-Public Use
  Company Number: US-GLAXOSMITHKLINE-US2020138749

PATIENT
  Age: 85 Year
  Sex: Female

DRUGS (1)
  1. VOLTAREN ARTHRITIS PAIN [Suspect]
     Active Substance: DICLOFENAC SODIUM
     Indication: NERVE BLOCK
     Dosage: UNK
     Dates: start: 20200711, end: 20200721

REACTIONS (4)
  - Product use in unapproved indication [Unknown]
  - Contraindicated product administered [Unknown]
  - Off label use [Unknown]
  - Drug effective for unapproved indication [Unknown]
